FAERS Safety Report 9152765 (Version 1)
Quarter: 2013Q1

REPORT INFORMATION
  Report Type: Spontaneous
  Country: DE (occurrence: DE)
  Receive Date: 20130308
  Receipt Date: 20130308
  Transmission Date: 20140127
  Serious: Yes (Life-Threatening, Hospitalization, Other)
  Sender: FDA-Public Use
  Company Number: DE-ELI_LILLY_AND_COMPANY-DE201302009162

PATIENT
  Age: 69 Year
  Sex: Female

DRUGS (7)
  1. ZYPREXA [Suspect]
     Indication: SCHIZOPHRENIA, PARANOID TYPE
     Dosage: 2.5 MG, UNKNOWN
     Route: 048
     Dates: start: 20121008, end: 20121029
  2. ZYPREXA [Suspect]
     Dosage: 7.5 MG, QD
  3. ASS [Concomitant]
     Dosage: 100 MG, UNKNOWN
  4. ATACAND [Concomitant]
     Dosage: 16 MG, UNKNOWN
  5. AMISULPRID [Concomitant]
     Dosage: 100 MG, UNKNOWN
     Dates: start: 20121018, end: 20121023
  6. AMISULPRID [Concomitant]
     Dosage: 200 MG, UNKNOWN
     Dates: start: 20121024, end: 20121029
  7. RISPERIDON [Concomitant]
     Dosage: 7 MG, UNKNOWN

REACTIONS (1)
  - Cardiac arrest [Not Recovered/Not Resolved]
